FAERS Safety Report 5713762-8 (Version None)
Quarter: 2008Q2

REPORT INFORMATION
  Report Type: 
  Country: None (occurrence: None)
  Receive Date: 20080421
  Receipt Date: 20080408
  Transmission Date: 20081010
  Serious: Yes (Hospitalization)
  Sender: FDA-Public Use
  Company Number: 2008BI009689

PATIENT
  Age: 61 Year
  Sex: Female

DRUGS (2)
  1. AVONEX [Suspect]
     Indication: MULTIPLE SCLEROSIS
     Dosage: 30 UG;QW;IM
     Route: 030
     Dates: start: 20080227, end: 20080401
  2. MEDICATIONS [Concomitant]

REACTIONS (7)
  - AMNESIA [None]
  - CONFUSIONAL STATE [None]
  - FEAR [None]
  - FORMICATION [None]
  - HALLUCINATION [None]
  - PSYCHOTIC DISORDER [None]
  - URINARY TRACT INFECTION [None]
